FAERS Safety Report 5805015-4 (Version None)
Quarter: 2008Q3

REPORT INFORMATION
  Report Type: 
  Country: None (occurrence: None)
  Receive Date: 20080709
  Receipt Date: 20080702
  Transmission Date: 20090109
  Serious: Yes (Death, Other)
  Sender: FDA-Public Use
  Company Number: ZA-BOEHRINGER INGELHEIM GMBH, GERMANY-2007-DE-04229GD

PATIENT

DRUGS (3)
  1. NEVIRAPINE [Suspect]
     Indication: PROPHYLAXIS
     Route: 064
  2. NEVIRAPINE [Suspect]
     Indication: HUMAN IMMUNODEFICIENCY VIRUS TRANSMISSION
  3. COTRIMOXAZOLE [Concomitant]
     Indication: PROPHYLAXIS

REACTIONS (3)
  - DRUG INEFFECTIVE [None]
  - GASTROENTERITIS [None]
  - HUMAN IMMUNODEFICIENCY VIRUS TRANSMISSION [None]
